FAERS Safety Report 9321140 (Version 1)
Quarter: 2013Q2

REPORT INFORMATION
  Report Type: Spontaneous
  Country: US (occurrence: None)
  Receive Date: 20130528
  Receipt Date: 20130528
  Transmission Date: 20140414
  Serious: Yes (Death, Hospitalization)
  Sender: FDA-Public Use
  Company Number: 2012AP002205

PATIENT
  Age: 37 Year
  Sex: Female
  Weight: 80 kg

DRUGS (2)
  1. FERRIPROX [Suspect]
     Indication: THALASSAEMIA BETA
     Route: 048
     Dates: start: 20120206
  2. FERRIPROX [Suspect]
     Indication: IRON OVERLOAD
     Route: 048
     Dates: start: 20120206

REACTIONS (4)
  - Cardiac failure [None]
  - Paraesthesia [None]
  - Urinary tract infection [None]
  - Disease progression [None]
